FAERS Safety Report 9396335 (Version 2)
Quarter: 2013Q3

REPORT INFORMATION
  Report Type: Spontaneous
  Country: US (occurrence: None)
  Receive Date: 20130708
  Receipt Date: 20130912
  Transmission Date: 20140515
  Serious: Yes (Other)
  Sender: FDA-Public Use
  Company Number: JPI-P-033383

PATIENT
  Age: 22 Year
  Sex: Female

DRUGS (1)
  1. XYREM [Suspect]
     Indication: NARCOLEPSY
     Dosage: 4.5 GM (2.25 GM, 2 IN 1 D), ORAL
     Route: 048
     Dates: start: 20130109, end: 2013

REACTIONS (7)
  - Abnormal behaviour [None]
  - Autonomic neuropathy [None]
  - Obsessive-compulsive disorder [None]
  - Personality change [None]
  - Confusional state [None]
  - Anxiety [None]
  - Intentional drug misuse [None]
